FAERS Safety Report 5128740-X (Version None)
Quarter: 2006Q4

REPORT INFORMATION
  Report Type: 
  Country: None (occurrence: None)
  Receive Date: 20061017
  Receipt Date: 20061009
  Transmission Date: 20070319
  Serious: Yes (Hospitalization)
  Sender: FDA-Public Use
  Company Number: 2006PK02053

PATIENT
  Age: 36 Year

DRUGS (10)
  1. SEROQUEL [Suspect]
     Dosage: 75 TO 1200 MG
     Route: 048
     Dates: start: 20060906
  2. SEROQUEL [Interacting]
     Route: 048
  3. LEPONEX [Interacting]
     Route: 048
     Dates: start: 19940101, end: 20060913
  4. LEPONEX [Interacting]
     Route: 048
     Dates: start: 20060928, end: 20060930
  5. LEPONEX [Interacting]
     Route: 048
     Dates: start: 20061001, end: 20061004
  6. HALDOL [Interacting]
     Dates: start: 20060811, end: 20060913
  7. ABILIFY [Interacting]
     Route: 048
     Dates: start: 20060712, end: 20060903
  8. OXAZEPAM [Concomitant]
     Dates: start: 20060706
  9. DOMINAL FORTE [Concomitant]
  10. LOVENOX [Concomitant]
     Dates: start: 20060805

REACTIONS (3)
  - DRUG INTERACTION [None]
  - HEPATOCELLULAR DAMAGE [None]
  - LIVER FUNCTION TEST ABNORMAL [None]
